FAERS Safety Report 19996170 (Version 1)
Quarter: 2021Q4

REPORT INFORMATION
  Report Type: Report from Study
  Country: US (occurrence: US)
  Receive Date: 20211026
  Receipt Date: 20211026
  Transmission Date: 20220303
  Serious: Yes (Hospitalization)
  Sender: FDA-Public Use
  Company Number: US-IGSA-BIG0016319

PATIENT
  Age: 29 Year
  Sex: Female

DRUGS (1)
  1. GAMUNEX-C [Suspect]
     Active Substance: HUMAN IMMUNOGLOBULIN G
     Indication: Immunodeficiency common variable
     Dosage: 58 GRAM, Q.4WK.
     Route: 042
     Dates: start: 20211007, end: 20211007

REACTIONS (4)
  - Cough [Not Recovered/Not Resolved]
  - Dyspnoea [Unknown]
  - Bronchospasm [Unknown]
  - Vomiting [Unknown]

NARRATIVE: CASE EVENT DATE: 20211007
